FAERS Safety Report 10165955 (Version 2)
Quarter: 2014Q2

REPORT INFORMATION
  Report Type: Spontaneous
  Country: JP (occurrence: JP)
  Receive Date: 20140510
  Receipt Date: 20140527
  Transmission Date: 20141212
  Serious: Yes (Other)
  Sender: FDA-Public Use
  Company Number: JP-MYLANLABS-2014S1010291

PATIENT
  Age: 77 Year
  Sex: Female

DRUGS (1)
  1. ALENDRONATE [Suspect]
     Indication: OSTEOPOROSIS PROPHYLAXIS
     Route: 048
     Dates: start: 201206

REACTIONS (1)
  - Osteonecrosis [Not Recovered/Not Resolved]
